FAERS Safety Report 10680523 (Version 3)
Quarter: 2017Q4

REPORT INFORMATION
  Report Type: Spontaneous
  Country: US (occurrence: US)
  Receive Date: 20141229
  Receipt Date: 20171221
  Transmission Date: 20180320
  Serious: Yes (Hospitalization)
  Sender: FDA-Public Use
  Company Number: US-SA-2014SA028133

PATIENT
  Age: 59 Year
  Sex: Male
  Weight: 172 kg

DRUGS (41)
  1. PREVACID [Concomitant]
     Active Substance: LANSOPRAZOLE
  2. CARDIZEM [Concomitant]
     Active Substance: DILTIAZEM HYDROCHLORIDE
     Route: 048
  3. PLAVIX [Suspect]
     Active Substance: CLOPIDOGREL BISULFATE
     Indication: ACUTE CORONARY SYNDROME
     Route: 048
     Dates: end: 201301
  4. TESSALON [Concomitant]
     Active Substance: BENZONATATE
     Indication: COUGH
     Dosage: STERNGTH: 200 MG, Q 8 H AS REQUIRED
  5. LOPRESSOR [Concomitant]
     Active Substance: METOPROLOL TARTRATE
  6. VENTOLIN [Concomitant]
     Active Substance: ALBUTEROL SULFATE
     Dosage: ONE OR TWO PUFFS EVERY FOUR HOURS AS NEEDED
  7. CARAFATE [Concomitant]
     Active Substance: SUCRALFATE
  8. DILAUDID [Concomitant]
     Active Substance: HYDROMORPHONE HYDROCHLORIDE
     Indication: PAIN
     Dosage: EVERY 3-4 HOURS AS NEEDED
  9. PLAVIX [Suspect]
     Active Substance: CLOPIDOGREL BISULFATE
     Indication: MYOCARDIAL INFARCTION
     Dosage: STRENGTH: 75 MG TABLET
     Route: 048
     Dates: start: 200809, end: 201103
  10. RANITIDINE. [Concomitant]
     Active Substance: RANITIDINE
  11. TRAZODONE [Concomitant]
     Active Substance: TRAZODONE HYDROCHLORIDE
     Dosage: STRENGTH: 50
  12. IMDUR [Concomitant]
     Active Substance: ISOSORBIDE MONONITRATE
  13. PROTONIX [Concomitant]
     Active Substance: PANTOPRAZOLE SODIUM
  14. PLAVIX [Suspect]
     Active Substance: CLOPIDOGREL BISULFATE
     Indication: ACUTE CORONARY SYNDROME
     Dosage: STRENGTH: 75 MG TABLET
     Route: 048
     Dates: start: 200809, end: 201103
  15. PLAVIX [Suspect]
     Active Substance: CLOPIDOGREL BISULFATE
     Indication: STENT PLACEMENT
     Route: 048
     Dates: end: 201301
  16. PLAVIX [Suspect]
     Active Substance: CLOPIDOGREL BISULFATE
     Indication: MYOCARDIAL INFARCTION
     Route: 048
     Dates: end: 201301
  17. ASPIRIN. [Suspect]
     Active Substance: ASPIRIN
     Route: 048
     Dates: start: 2008
  18. FLEXERIL [Concomitant]
     Active Substance: CYCLOBENZAPRINE HYDROCHLORIDE
     Dosage: Q 8 HOURS AS NEEDED
  19. PRAVACHOL [Concomitant]
     Active Substance: PRAVASTATIN SODIUM
  20. DESYREL [Concomitant]
     Active Substance: TRAZODONE HYDROCHLORIDE
  21. ULTRACET [Concomitant]
     Active Substance: ACETAMINOPHEN\TRAMADOL HYDROCHLORIDE
     Dosage: DOSE: 1 OR 2 Q FOUR HOURS AS REQUIRED.
  22. AZITHROMYCIN ANHYDROUS. [Concomitant]
     Active Substance: AZITHROMYCIN ANHYDROUS
     Dosage: STRENGTH: 250 MG
  23. PRAVASTATIN. [Concomitant]
     Active Substance: PRAVASTATIN
  24. ULTRAM [Concomitant]
     Active Substance: TRAMADOL HYDROCHLORIDE
     Dosage: DOSE: ONE OR TWO EVERY FOUR HOUR AS NEEDED FOR PAIN
  25. NORVASC [Concomitant]
     Active Substance: AMLODIPINE BESYLATE
  26. ZOFRAN [Concomitant]
     Active Substance: ONDANSETRON HYDROCHLORIDE
  27. LEVAQUIN [Concomitant]
     Active Substance: LEVOFLOXACIN
  28. NEURONTIN [Concomitant]
     Active Substance: GABAPENTIN
     Dosage: STRENGTH: 300 MG
  29. VALIUM [Concomitant]
     Active Substance: DIAZEPAM
     Indication: MUSCLE SPASMS
     Dosage: DOSE: 5 TO 10 MG DAILY AS NEEDED AND ALSO 10 MG ONCE OR TWICE  A DAY
  30. LEXAPRO [Concomitant]
     Active Substance: ESCITALOPRAM OXALATE
     Dosage: STRENGTH:20 MG AND 50 MG QHS
  31. PREDNISONE. [Concomitant]
     Active Substance: PREDNISONE
     Route: 048
  32. PLAVIX [Suspect]
     Active Substance: CLOPIDOGREL BISULFATE
     Indication: STENT PLACEMENT
     Dosage: STRENGTH: 75 MG TABLET
     Route: 048
     Dates: start: 200809, end: 201103
  33. VALIUM [Concomitant]
     Active Substance: DIAZEPAM
     Indication: ANXIETY
     Dosage: DOSE: 5 TO 10 MG DAILY AS NEEDED AND ALSO 10 MG ONCE OR TWICE  A DAY
  34. DILTIAZEM. [Concomitant]
     Active Substance: DILTIAZEM
     Dosage: STRENGTH: 180
  35. NITROGLYCERINE [Concomitant]
     Active Substance: NITROGLYCERIN
     Route: 060
  36. CRESTOR [Concomitant]
     Active Substance: ROSUVASTATIN CALCIUM
     Dosage: STRENGTH: 10 MG
  37. DURAGESIC [Concomitant]
     Active Substance: FENTANYL
     Dosage: EVERY 72 HOURS
  38. OMEPRAZOLE. [Concomitant]
     Active Substance: OMEPRAZOLE
     Dosage: STRENGTH: 40 MG
  39. GABAPENTIN. [Concomitant]
     Active Substance: GABAPENTIN
     Dosage: STERNGTH: 300 MG
  40. PEPCID [Concomitant]
     Active Substance: FAMOTIDINE
  41. PHENERGAN [Concomitant]
     Active Substance: PROMETHAZINE HYDROCHLORIDE

REACTIONS (3)
  - Gastrointestinal haemorrhage [Not Recovered/Not Resolved]
  - Haemorrhage [Not Recovered/Not Resolved]
  - Drug hypersensitivity [Unknown]

NARRATIVE: CASE EVENT DATE: 201103
